FAERS Safety Report 20783318 (Version 2)
Quarter: 2022Q2

REPORT INFORMATION
  Report Type: Spontaneous
  Country: US (occurrence: US)
  Receive Date: 20220504
  Receipt Date: 20220601
  Transmission Date: 20220721
  Serious: No
  Sender: FDA-Public Use
  Company Number: US-PFIZER INC-202200645792

PATIENT
  Age: 61 Year
  Sex: Female

DRUGS (5)
  1. TOZINAMERAN [Suspect]
     Active Substance: TOZINAMERAN
     Indication: COVID-19 immunisation
     Dosage: DOSE 1, 0.3 ML SINGLE
     Route: 030
     Dates: start: 20210422, end: 20210422
  2. TOZINAMERAN [Suspect]
     Active Substance: TOZINAMERAN
     Dosage: DOSE 2, 0.3 ML SINGLE
     Route: 030
     Dates: start: 20210513, end: 20210513
  3. IBRANCE [Concomitant]
     Active Substance: PALBOCICLIB
     Indication: Breast cancer female
     Dosage: 75 MG
     Dates: start: 201703
  4. LETROZOLE [Concomitant]
     Active Substance: LETROZOLE
     Indication: Antioestrogen therapy
     Dosage: 2.5 MG
     Dates: start: 202010, end: 20210520
  5. LETROZOLE [Concomitant]
     Active Substance: LETROZOLE
     Indication: Breast cancer female

REACTIONS (10)
  - Condition aggravated [Unknown]
  - Joint swelling [Unknown]
  - Gait disturbance [Unknown]
  - Joint swelling [Unknown]
  - Fatigue [Unknown]
  - Myalgia [Unknown]
  - Nausea [Unknown]
  - Tumour marker decreased [Unknown]
  - Therapeutic response unexpected [Unknown]
  - Arthralgia [Unknown]

NARRATIVE: CASE EVENT DATE: 20210101
